FAERS Safety Report 14319419 (Version 1)
Quarter: 2017Q4

REPORT INFORMATION
  Report Type: Spontaneous
  Country: US (occurrence: US)
  Receive Date: 20171221
  Receipt Date: 20171221
  Transmission Date: 20180321
  Serious: Yes (Hospitalization)
  Sender: FDA-Public Use
  Company Number: None

PATIENT
  Age: 72 Year
  Sex: Female

DRUGS (19)
  1. LASIX [Concomitant]
     Active Substance: FUROSEMIDE
  2. LACTULOSE. [Concomitant]
     Active Substance: LACTULOSE
  3. ZOLOFT [Concomitant]
     Active Substance: SERTRALINE HYDROCHLORIDE
  4. IBRANCE [Suspect]
     Active Substance: PALBOCICLIB
     Indication: BREAST CANCER
     Dates: start: 20160406
  5. FENTANYL. [Concomitant]
     Active Substance: FENTANYL
  6. PERIOGARD SOL [Concomitant]
  7. CARVEDILOL. [Concomitant]
     Active Substance: CARVEDILOL
  8. LISINOPRIL. [Concomitant]
     Active Substance: LISINOPRIL
  9. XGEVA [Suspect]
     Active Substance: DENOSUMAB
  10. OXYCODONE [Concomitant]
     Active Substance: OXYCODONE
  11. STOOL SOFTNER [Concomitant]
  12. LEVOTHYROXIN [Concomitant]
     Active Substance: LEVOTHYROXINE
  13. AMOXICILLIN. [Concomitant]
     Active Substance: AMOXICILLIN
  14. BRILINTA [Concomitant]
     Active Substance: TICAGRELOR
  15. POTASSIUM POW CHLORIDE [Concomitant]
  16. PREDNISONE. [Concomitant]
     Active Substance: PREDNISONE
  17. ELIQUIS [Concomitant]
     Active Substance: APIXABAN
  18. FEMARA [Concomitant]
     Active Substance: LETROZOLE
  19. PANTOPRAZOLE [Concomitant]
     Active Substance: PANTOPRAZOLE

REACTIONS (1)
  - Vomiting [None]
